FAERS Safety Report 5654633-5 (Version None)
Quarter: 2008Q1

REPORT INFORMATION
  Report Type: 
  Country: None (occurrence: None)
  Receive Date: 20080307
  Receipt Date: 20080307
  Transmission Date: 20080703
  Serious: Yes (Hospitalization)
  Sender: FDA-Public Use
  Company Number: None

PATIENT
  Weight: 42.73 kg

DRUGS (5)
  1. SUNITINIB [Suspect]
     Indication: NEOPLASM MALIGNANT
     Dosage: 37.5MG/DAILY/ORAL/PILL
     Route: 048
     Dates: start: 20071121, end: 20071226
  2. NEURONTIN [Concomitant]
  3. OXYCODONE HCL [Concomitant]
  4. PREDNISONE [Concomitant]
  5. PRILOSEC + NEXIUM [Concomitant]

REACTIONS (3)
  - ADVERSE DRUG REACTION [None]
  - DEHYDRATION [None]
  - INFECTION [None]
